FAERS Safety Report 15159196 (Version 1)
Quarter: 2018Q3

REPORT INFORMATION
  Report Type: Spontaneous
  Country: US (occurrence: US)
  Receive Date: 20180718
  Receipt Date: 20180718
  Transmission Date: 20181010
  Serious: No
  Sender: FDA-Public Use
  Company Number: US-ENDO PHARMACEUTICALS INC-2018-038498

PATIENT
  Sex: Male

DRUGS (1)
  1. ALLOPURINOL TABLETS 300MG [Suspect]
     Active Substance: ALLOPURINOL
     Indication: GOUT
     Dosage: 600 MG, UNKNOWN
     Route: 065

REACTIONS (2)
  - Pain [Unknown]
  - Gouty tophus [Unknown]
